FAERS Safety Report 9439827 (Version 1)
Quarter: 2013Q3

REPORT INFORMATION
  Report Type: Spontaneous
  Country: US (occurrence: US)
  Receive Date: 20130805
  Receipt Date: 20130805
  Transmission Date: 20140515
  Serious: No
  Sender: FDA-Public Use
  Company Number: US-PFIZER INC-2013226643

PATIENT
  Age: 53 Year
  Sex: Female
  Weight: 58.96 kg

DRUGS (7)
  1. LYRICA [Suspect]
     Indication: FIBROMYALGIA
     Dosage: 50 MG, 3X/DAY
     Dates: start: 2003
  2. LYRICA [Suspect]
     Indication: NEURALGIA
     Dosage: 75 MG, 3X/DAY
  3. LYRICA [Suspect]
     Dosage: 100 MG, 3X/DAY
  4. LYRICA [Suspect]
     Dosage: 300 MG, 3X/DAY
  5. LYRICA [Suspect]
     Dosage: 350 MG, 3X/DAY
  6. LYRICA [Suspect]
     Dosage: UNK, 3X/DAY
     Dates: end: 20130728
  7. NEURONTIN [Concomitant]
     Dosage: 800 MG, 3X/DAY

REACTIONS (10)
  - Malaise [Not Recovered/Not Resolved]
  - Influenza like illness [Not Recovered/Not Resolved]
  - Bone pain [Not Recovered/Not Resolved]
  - Diarrhoea [Not Recovered/Not Resolved]
  - Nausea [Not Recovered/Not Resolved]
  - Hyperhidrosis [Not Recovered/Not Resolved]
  - Headache [Not Recovered/Not Resolved]
  - Pain [Not Recovered/Not Resolved]
  - Drug ineffective [Not Recovered/Not Resolved]
  - Overdose [Recovered/Resolved]
